FAERS Safety Report 8448908-4 (Version None)
Quarter: 2012Q2

REPORT INFORMATION
  Report Type: 
  Country: None (occurrence: None)
  Receive Date: 20120619
  Receipt Date: 20120612
  Transmission Date: 20120825
  Serious: Yes (Death)
  Sender: FDA-Public Use
  Company Number: US-GLAXOSMITHKLINE-A0981581A

PATIENT
  Age: 70 Year
  Sex: Female

DRUGS (14)
  1. LANSOPRAZOLE [Concomitant]
  2. NIFEDIPINE [Concomitant]
  3. CLONAZEPAM [Concomitant]
  4. FEMARA [Concomitant]
  5. XELODA [Concomitant]
  6. FOLIC ACID [Concomitant]
  7. CITRACAL + D [Concomitant]
  8. IRON [Concomitant]
  9. METOPROLOL SUCCINATE [Concomitant]
  10. PLAVIX [Concomitant]
  11. TYKERB [Suspect]
     Indication: BREAST CANCER
     Dosage: 1250MG PER DAY
     Route: 048
     Dates: start: 20111116
  12. ASPIRIN [Concomitant]
  13. BUPROPION HCL [Concomitant]
  14. LEXAPRO [Concomitant]

REACTIONS (1)
  - DEATH [None]
